FAERS Safety Report 7433355-4 (Version None)
Quarter: 2011Q2

REPORT INFORMATION
  Report Type: 
  Country: None (occurrence: None)
  Receive Date: 20110422
  Receipt Date: 20110419
  Transmission Date: 20111010
  Serious: No
  Sender: FDA-Public Use
  Company Number: US-B.I. PHARMACEUTICALS,INC./RIDGEFIELD-2011-BP-05886BP

PATIENT
  Age: 67 Year
  Sex: Female
  Weight: 49.9 kg

DRUGS (5)
  1. LOVASTATIN [Concomitant]
     Route: 048
  2. POTASSIUM CHLORIDE [Concomitant]
     Route: 048
  3. LASIX [Concomitant]
     Route: 048
  4. DILTIAZEM [Concomitant]
     Route: 048
  5. PRADAXA [Suspect]
     Indication: ATRIAL FIBRILLATION
     Dosage: 150 MG
     Route: 048
     Dates: start: 20101129, end: 20110223

REACTIONS (1)
  - HYPOAESTHESIA [None]
